FAERS Safety Report 19877070 (Version 1)
Quarter: 2021Q3

REPORT INFORMATION
  Report Type: Spontaneous
  Country: CA (occurrence: CA)
  Receive Date: 20210923
  Receipt Date: 20210923
  Transmission Date: 20211014
  Serious: Yes (Hospitalization)
  Sender: FDA-Public Use
  Company Number: CA-TEVA-2021-CA-1956338

PATIENT
  Age: 33 Year
  Sex: Female
  Weight: 89 kg

DRUGS (10)
  1. VALTREX [Concomitant]
     Active Substance: VALACYCLOVIR HYDROCHLORIDE
  2. INDOCID [Suspect]
     Active Substance: INDOMETHACIN
     Indication: PAIN
     Route: 065
  3. PANTOLOC [Concomitant]
     Active Substance: PANTOPRAZOLE SODIUM
  4. RIZATRIPTAN. [Concomitant]
     Active Substance: RIZATRIPTAN
  5. PYRIDIUM [Concomitant]
     Active Substance: PHENAZOPYRIDINE
  6. VYVANSE [Concomitant]
     Active Substance: LISDEXAMFETAMINE DIMESYLATE
  7. NAPROXEN. [Suspect]
     Active Substance: NAPROXEN
     Indication: PAIN
     Route: 065
  8. DILAUDID [Concomitant]
     Active Substance: HYDROMORPHONE HYDROCHLORIDE
  9. FLOMAX [Concomitant]
     Active Substance: TAMSULOSIN HYDROCHLORIDE
  10. VESICARE [Concomitant]
     Active Substance: SOLIFENACIN SUCCINATE

REACTIONS (2)
  - Drug-disease interaction [Recovering/Resolving]
  - Acute kidney injury [Recovering/Resolving]
